FAERS Safety Report 21249509 (Version 2)
Quarter: 2022Q4

REPORT INFORMATION
  Report Type: Spontaneous
  Country: DE (occurrence: DE)
  Receive Date: 20220824
  Receipt Date: 20221011
  Transmission Date: 20230112
  Serious: Yes (Hospitalization, Other)
  Sender: FDA-Public Use
  Company Number: DE-BoehringerIngelheim-2022-BI-187902

PATIENT
  Age: 80 Year
  Sex: Male

DRUGS (5)
  1. EMPAGLIFLOZIN [Suspect]
     Active Substance: EMPAGLIFLOZIN
     Indication: Type 2 diabetes mellitus
     Dosage: 1-0-0
  2. EMPAGLIFLOZIN [Suspect]
     Active Substance: EMPAGLIFLOZIN
     Indication: Cardiac failure
  3. TIOTROPIUM [Concomitant]
     Active Substance: TIOTROPIUM
     Indication: Dyspnoea exertional
  4. VALSARTAN [Concomitant]
     Active Substance: VALSARTAN
     Indication: Product used for unknown indication
     Dosage: 1-0-1
  5. ATORVASTATIN [Concomitant]
     Active Substance: ATORVASTATIN
     Indication: Product used for unknown indication
     Dosage: 0-0-1

REACTIONS (5)
  - Cardiac failure [Unknown]
  - Pneumonia [Unknown]
  - Dyspnoea exertional [Unknown]
  - COVID-19 [Recovered/Resolved]
  - Renal impairment [Unknown]
